FAERS Safety Report 5157511-3 (Version None)
Quarter: 2006Q4

REPORT INFORMATION
  Report Type: 
  Country: None (occurrence: None)
  Receive Date: 20061127
  Receipt Date: 20061012
  Transmission Date: 20070319
  Serious: Yes (Other)
  Sender: FDA-Public Use
  Company Number: AU-GLAXOSMITHKLINE-B0442015A

PATIENT
  Age: 7 Year
  Sex: Male

DRUGS (3)
  1. ZOFRAN [Suspect]
     Indication: DRUG USE FOR UNKNOWN INDICATION
  2. REHYDRATION [Concomitant]
     Indication: DEHYDRATION
     Route: 048
  3. FLUIDS [Concomitant]

REACTIONS (3)
  - DEHYDRATION [None]
  - DYSTONIA [None]
  - EXTRAPYRAMIDAL DISORDER [None]
